FAERS Safety Report 10269734 (Version 1)
Quarter: 2014Q2

REPORT INFORMATION
  Report Type: Spontaneous
  Country: US (occurrence: None)
  Receive Date: 20140623
  Receipt Date: 20140623
  Transmission Date: 20141212
  Serious: No
  Sender: FDA-Public Use
  Company Number: US-145550

PATIENT
  Age: 51 Year
  Sex: Female
  Weight: 74 kg

DRUGS (4)
  1. BOTULISM ANTITOXIN [Suspect]
     Indication: BOTULISM
     Dates: start: 20140606, end: 20140610
  2. CEFTRIAXONE [Concomitant]
  3. PANTOPRAZOLE [Concomitant]
  4. PROPOFOL [Concomitant]

REACTIONS (2)
  - Blood pressure systolic increased [None]
  - Heart rate decreased [None]
